FAERS Safety Report 25540470 (Version 3)
Quarter: 2025Q3

REPORT INFORMATION
  Report Type: Spontaneous
  Country: US (occurrence: US)
  Receive Date: 20250710
  Receipt Date: 20250820
  Transmission Date: 20251020
  Serious: No
  Sender: INCYTE
  Company Number: US-EVENT-003286

PATIENT

DRUGS (1)
  1. OPZELURA [Suspect]
     Active Substance: RUXOLITINIB PHOSPHATE
     Indication: Dermatitis atopic
     Dosage: UNK, BID X 30 DAYS
     Route: 065

REACTIONS (3)
  - Dermatitis atopic [Not Recovered/Not Resolved]
  - Product availability issue [Unknown]
  - Product physical consistency issue [Unknown]
